FAERS Safety Report 18381030 (Version 1)
Quarter: 2020Q4

REPORT INFORMATION
  Report Type: Spontaneous
  Country: US (occurrence: US)
  Receive Date: 20201014
  Receipt Date: 20201014
  Transmission Date: 20210114
  Serious: No
  Sender: FDA-Public Use
  Company Number: US-BAUSCH-BL-2020-027862

PATIENT
  Age: 38 Year
  Sex: Female

DRUGS (3)
  1. MESALAMINE EXTENDED-RELEASE CAPSULES [Suspect]
     Active Substance: MESALAMINE
     Indication: CROHN^S DISEASE
     Route: 048
     Dates: start: 20200919
  2. PROBIOTICS [Concomitant]
     Active Substance: PROBIOTICS NOS
     Indication: PRODUCT USED FOR UNKNOWN INDICATION
     Route: 065
  3. MESALAMINE EXTENDED-RELEASE CAPSULES [Suspect]
     Active Substance: MESALAMINE
     Indication: OFF LABEL USE

REACTIONS (4)
  - Off label use [Unknown]
  - Unevaluable event [Not Recovered/Not Resolved]
  - Product substitution issue [Unknown]
  - Abdominal distension [Not Recovered/Not Resolved]

NARRATIVE: CASE EVENT DATE: 202009
